FAERS Safety Report 12996583 (Version 2)
Quarter: 2017Q2

REPORT INFORMATION
  Report Type: Spontaneous
  Country: JP (occurrence: JP)
  Receive Date: 20161204
  Receipt Date: 20170501
  Transmission Date: 20170830
  Serious: Yes (Other)
  Sender: FDA-Public Use
  Company Number: JP-GLAXOSMITHKLINE-JP2016JPN175652

PATIENT
  Age: 11 Year
  Sex: Female
  Weight: 29 kg

DRUGS (2)
  1. IMIGRAN [Suspect]
     Active Substance: SUMATRIPTAN SUCCINATE
     Dosage: 50 MG, UNK
     Route: 048
  2. LOMERIZINE HYDROCHLORIDE [Concomitant]
     Active Substance: LOMERIZINE HYDROCHLORIDE
     Route: 048

REACTIONS (6)
  - Papilloedema [Recovered/Resolved]
  - Idiopathic orbital inflammation [Recovered/Resolved]
  - Symptom masked [Unknown]
  - Therapeutic response unexpected [Unknown]
  - Retinal detachment [Recovered/Resolved]
  - Drug administered to patient of inappropriate age [Unknown]
